FAERS Safety Report 8289941-5 (Version None)
Quarter: 2012Q2

REPORT INFORMATION
  Report Type: 
  Country: None (occurrence: None)
  Receive Date: 20120417
  Receipt Date: 20120411
  Transmission Date: 20120825
  Serious: Yes (Other)
  Sender: FDA-Public Use
  Company Number: CA-AMGEN-CANSP2012015873

PATIENT
  Age: 34 Year
  Sex: Female
  Weight: 53.061 kg

DRUGS (8)
  1. ENBREL [Suspect]
     Dosage: 50 MG, 2 TIMES/WK
     Route: 058
     Dates: start: 20110912, end: 20111212
  2. ENBREL [Suspect]
     Dosage: 50 MG, 2 TIMES/WK
     Route: 058
     Dates: start: 20100806, end: 20110801
  3. OMEGA 3-6-9 [Concomitant]
     Dosage: UNK
  4. ASCORBIC ACID [Concomitant]
     Dosage: UNK
  5. ENBREL [Suspect]
     Indication: PSORIASIS
     Dosage: 50 MG, 2 TIMES/WK
     Route: 058
     Dates: start: 20120127
  6. CO Q 10 [Concomitant]
     Dosage: UNK
  7. VITAMIN E [Concomitant]
     Dosage: UNK
  8. MULTI-VITAMINS [Concomitant]
     Dosage: UNK

REACTIONS (7)
  - RED BLOOD CELL COUNT DECREASED [None]
  - LIVER FUNCTION TEST ABNORMAL [None]
  - COUGH [None]
  - NASAL CONGESTION [None]
  - PSORIASIS [None]
  - HAEMORRHAGE [None]
  - INJECTION SITE HAEMORRHAGE [None]
